FAERS Safety Report 18021736 (Version 7)
Quarter: 2021Q1

REPORT INFORMATION
  Report Type: Report from Study
  Country: US (occurrence: US)
  Receive Date: 20200714
  Receipt Date: 20210105
  Transmission Date: 20210419
  Serious: Yes (Other)
  Sender: FDA-Public Use
  Company Number: NVSC2020US196165

PATIENT
  Age: 64 Year
  Sex: Male

DRUGS (2)
  1. ENTRESTO [Suspect]
     Active Substance: SACUBITRIL\VALSARTAN
     Indication: PRODUCT USED FOR UNKNOWN INDICATION
     Dosage: UNK
     Route: 065
  2. METOPROLOL. [Suspect]
     Active Substance: METOPROLOL
     Indication: PRODUCT USED FOR UNKNOWN INDICATION
     Dosage: UNK
     Route: 065

REACTIONS (9)
  - Decreased activity [Unknown]
  - Heart rate decreased [Unknown]
  - Grip strength decreased [Recovering/Resolving]
  - Dizziness postural [Recovering/Resolving]
  - Weight decreased [Unknown]
  - Fatigue [Unknown]
  - Hypotension [Unknown]
  - Ejection fraction decreased [Recovering/Resolving]
  - Balance disorder [Recovering/Resolving]
